FAERS Safety Report 13927295 (Version 1)
Quarter: 2017Q3

REPORT INFORMATION
  Report Type: Spontaneous
  Country: US (occurrence: US)
  Receive Date: 20170831
  Receipt Date: 20170831
  Transmission Date: 20171127
  Serious: Yes (Disabling)
  Sender: FDA-Public Use
  Company Number: None

PATIENT
  Sex: Female
  Weight: 56.7 kg

DRUGS (11)
  1. KLONOPIN [Concomitant]
     Active Substance: CLONAZEPAM
  2. TURMERIC [Concomitant]
     Active Substance: HERBALS\TURMERIC
  3. PROTEIN SUPPLEMENT [Concomitant]
     Active Substance: PROTEIN
  4. SYNTHROID [Concomitant]
     Active Substance: LEVOTHYROXINE SODIUM
  5. AMPHETAMINE-DEX [Concomitant]
  6. CYMBALTA [Concomitant]
     Active Substance: DULOXETINE HYDROCHLORIDE
  7. LAMICTAL [Concomitant]
     Active Substance: LAMOTRIGINE
  8. BIOPERINE BLACK PEPPER [Concomitant]
  9. ASSURED ASPIRIN [Suspect]
     Active Substance: ASPIRIN
     Indication: THROMBOSIS PROPHYLAXIS
     Dosage: ?          QUANTITY:1 TABLET(S);?
     Route: 048
  10. EQUATE PAIN RELIEVER EXTRA STRENGTH [Suspect]
     Active Substance: ACETAMINOPHEN
     Indication: OSTEOARTHRITIS
     Dosage: ?          QUANTITY:3 TABLET(S);?
     Route: 048
  11. TOPAMAX [Concomitant]
     Active Substance: TOPIRAMATE

REACTIONS (6)
  - Impaired healing [None]
  - Skin exfoliation [None]
  - Scab [None]
  - Rash [None]
  - Rash pustular [None]
  - Pruritus [None]

NARRATIVE: CASE EVENT DATE: 20150615
